FAERS Safety Report 9372837 (Version 2)
Quarter: 2013Q3

REPORT INFORMATION
  Report Type: Spontaneous
  Country: CA (occurrence: None)
  Receive Date: 20130610
  Receipt Date: 20130718
  Transmission Date: 20140515
  Serious: Yes (Other)
  Sender: FDA-Public Use
  Company Number: 2013036290

PATIENT
  Age: 66 Year
  Sex: Male

DRUGS (1)
  1. PRIVIGEN (IMMUNE GLOBULIN INTRAVENOUS (HUMAN) 10% LIQUID) [Suspect]
     Indication: HYPOGAMMAGLOBULINAEMIA
     Dosage: 35 G 1X/MONTH   INTRAVENOUS (NOT OTHERWISE SPECIFIED)
     Route: 042
     Dates: start: 20130424

REACTIONS (3)
  - Pneumonia [None]
  - Hyperhidrosis [None]
  - Anti-erythrocyte antibody [None]
